FAERS Safety Report 4505609-2 (Version None)
Quarter: 2004Q4

REPORT INFORMATION
  Report Type: 
  Country: None (occurrence: None)
  Receive Date: 20041119
  Receipt Date: 20040930
  Transmission Date: 20050328
  Serious: Yes (Hospitalization)
  Sender: FDA-Public Use
  Company Number: PHRM2004FR02980

PATIENT
  Age: 91 Year
  Sex: Female

DRUGS (3)
  1. EXELON [Suspect]
     Indication: DEMENTIA ALZHEIMER'S TYPE
     Dosage: 6 MG, BID
     Route: 048
     Dates: end: 20040911
  2. DIGOXIN [Suspect]
     Route: 048
     Dates: end: 20040912
  3. CORDARONE [Suspect]
     Route: 048
     Dates: end: 20040912

REACTIONS (12)
  - AREFLEXIA [None]
  - BRADYCARDIA [None]
  - C-REACTIVE PROTEIN INCREASED [None]
  - DISORIENTATION [None]
  - DRUG INTERACTION [None]
  - ELECTROCARDIOGRAM QRS COMPLEX PROLONGED [None]
  - FALL [None]
  - HYPOTONIA [None]
  - LUNG CREPITATION [None]
  - MALAISE [None]
  - RETROGRADE AMNESIA [None]
  - VOMITING [None]
